FAERS Safety Report 16786139 (Version 2)
Quarter: 2019Q3

REPORT INFORMATION
  Report Type: Spontaneous
  Country: DE (occurrence: DE)
  Receive Date: 20190909
  Receipt Date: 20190912
  Transmission Date: 20191005
  Serious: Yes (Death, Hospitalization, Other)
  Sender: FDA-Public Use
  Company Number: DE-PFIZER INC-2019386834

PATIENT
  Age: 73 Year
  Sex: Female
  Weight: 64 kg

DRUGS (27)
  1. CIPROBAY [CIPROFLOXACIN HYDROCHLORIDE] [Suspect]
     Active Substance: CIPROFLOXACIN
     Indication: CHOLANGITIS
     Dosage: 1000 MILLIGRAM, QD
     Route: 048
     Dates: start: 20010415, end: 20010426
  2. CIPROBAY [CIPROFLOXACIN HYDROCHLORIDE] [Suspect]
     Active Substance: CIPROFLOXACIN
     Indication: CHOLANGITIS
     Dosage: UNK UNK, QD
     Route: 042
     Dates: start: 20010426, end: 20010501
  3. ETILEFRINE [Suspect]
     Active Substance: ETILEFRINE
     Indication: HYPOTENSION
     Dosage: 30 GTT DROPS, QD
     Route: 048
     Dates: start: 20010508, end: 20010508
  4. MCP [Suspect]
     Active Substance: METOCLOPRAMIDE HYDROCHLORIDE
     Indication: NAUSEA
     Dosage: 1 DF, UNK
     Route: 042
     Dates: start: 20010508, end: 20010508
  5. MCP [Suspect]
     Active Substance: METOCLOPRAMIDE HYDROCHLORIDE
     Indication: NAUSEA
     Dosage: 20 GTT DROPS, QD
     Route: 048
     Dates: start: 20010508, end: 20010508
  6. INSULIN PROTAPHAN HUMAN [Suspect]
     Active Substance: INSULIN HUMAN
     Indication: DIABETES MELLITUS
     Dosage: UNK (16/12/8 INTERNATIONAL UNIT)
     Route: 058
     Dates: start: 20010415, end: 20010426
  7. CLONT [METRONIDAZOLE] [Suspect]
     Active Substance: METRONIDAZOLE
     Dosage: 1000 MG, 1X/DAY
     Route: 048
     Dates: start: 20010415, end: 20010426
  8. CLONT [METRONIDAZOLE] [Suspect]
     Active Substance: METRONIDAZOLE
     Dosage: UNK UNK, QD
     Route: 042
     Dates: start: 20010426, end: 20010501
  9. CARBIMAZOLE [Suspect]
     Active Substance: CARBIMAZOLE
     Indication: HYPERTHYROIDISM
     Dosage: 5 MILLIGRAM, QD
     Route: 048
  10. AMINOMIX [AMINO ACIDS NOS;ELECTROLYTES NOS;GLUCOSE] [Suspect]
     Active Substance: AMINO ACIDS\DEXTROSE\ELECTROLYTES NOS
     Indication: PARENTERAL NUTRITION
     Dosage: 500 MG/DAY
     Route: 042
     Dates: start: 20010415, end: 20010427
  11. DEXTROSE. [Suspect]
     Active Substance: DEXTROSE
     Indication: PARENTERAL NUTRITION
     Dosage: 500 MILLIGRAM, QD
     Route: 042
     Dates: start: 20010415, end: 20010505
  12. CHOLSPASMIN [HYMECROMONE] [Suspect]
     Active Substance: HYMECROMONE
     Dosage: UNK UNK, QD
     Route: 042
     Dates: start: 20010510
  13. CLONT [METRONIDAZOLE] [Suspect]
     Active Substance: METRONIDAZOLE
     Indication: CHOLANGITIS
     Dosage: 800 MILLIGRAM, QD
     Route: 048
     Dates: start: 20010415, end: 20010426
  14. ALDACTONE [Suspect]
     Active Substance: SPIRONOLACTONE
     Indication: OEDEMA
     Dosage: 100 MILLIGRAM, QD
     Route: 048
     Dates: start: 20010415, end: 20010426
  15. BAYPEN [Suspect]
     Active Substance: MEZLOCILLIN SODIUM
     Indication: CHOLANGITIS
     Dosage: 6 GRAM, QD
     Route: 042
     Dates: start: 20010428, end: 20010501
  16. ANTRA [OMEPRAZOLE] [Suspect]
     Active Substance: OMEPRAZOLE
     Indication: PROPHYLAXIS
     Dosage: UNK UNK, QD
     Route: 042
     Dates: start: 20010426, end: 20010505
  17. LOPERAMIDE [LOPERAMIDE HYDROCHLORIDE] [Suspect]
     Active Substance: LOPERAMIDE HYDROCHLORIDE
     Indication: DIARRHOEA
     Dosage: 1 DF, UNK
     Route: 048
     Dates: start: 20010430, end: 20010430
  18. JONOSTERIL [CALCIUM ACETATE;MAGNESIUM ACETATE;POTASSIUM ACETATE;SODIUM [Concomitant]
     Dosage: 250 MILLILITER, QD
     Route: 042
     Dates: start: 20010415, end: 20010505
  19. PANTOZOL [Suspect]
     Active Substance: PANTOPRAZOLE SODIUM
     Dosage: 20 MILLIGRAM, QD
     Route: 048
     Dates: start: 20010506
  20. KALIUMKLORID [Concomitant]
     Indication: HYPOKALAEMIA
     Dosage: UNK
     Route: 042
     Dates: start: 20010426, end: 20010501
  21. SODIUM CHLORIDE. [Concomitant]
     Active Substance: SODIUM CHLORIDE
     Dosage: 100 MILLILITER, QD
     Route: 042
     Dates: start: 20010508, end: 20010508
  22. INSULIN [Suspect]
     Active Substance: INSULIN NOS
     Indication: PARENTERAL NUTRITION
     Dosage: UNK
     Route: 042
     Dates: start: 20010415, end: 20010505
  23. FORTRAL [PENTAZOCINE] [Suspect]
     Active Substance: PENTAZOCINE
     Indication: PAIN
     Dosage: UNK UNK, QD
     Route: 042
     Dates: start: 20010508, end: 20010508
  24. PANTOZOL [Suspect]
     Active Substance: PANTOPRAZOLE SODIUM
     Dosage: 20 MILLIGRAM, QD
     Route: 048
     Dates: start: 20010415, end: 20010426
  25. VOMEX A [Suspect]
     Active Substance: DIMENHYDRINATE
     Indication: NAUSEA
     Dosage: 2 DF, UNK
     Route: 042
     Dates: start: 20010508, end: 20010508
  26. SOLU-DECORTIN-H [Suspect]
     Active Substance: PREDNISOLONE SODIUM SUCCINATE
     Indication: PRURITUS
     Dosage: 100 MILLIGRAM, QD
     Route: 042
     Dates: start: 20010511, end: 20010511
  27. KALINOR [POTASSIUM CHLORIDE] [Concomitant]
     Indication: HYPOKALAEMIA
     Dosage: UNK UNK, QD
     Route: 048
     Dates: start: 20010506

REACTIONS (11)
  - Cardiac arrest [Fatal]
  - Stevens-Johnson syndrome [Fatal]
  - Rash [Fatal]
  - Skin exfoliation [Fatal]
  - Lip erosion [Fatal]
  - Toxic epidermal necrolysis [Fatal]
  - Pruritus [Fatal]
  - Conjunctivitis [Fatal]
  - Skin lesion [Fatal]
  - Blister [Fatal]
  - Circulatory collapse [Fatal]

NARRATIVE: CASE EVENT DATE: 20010511
